FAERS Safety Report 8268544-2 (Version None)
Quarter: 2012Q2

REPORT INFORMATION
  Report Type: 
  Country: None (occurrence: None)
  Receive Date: 20120409
  Receipt Date: 20120328
  Transmission Date: 20120825
  Serious: Yes (Other)
  Sender: FDA-Public Use
  Company Number: FR-VIIV HEALTHCARE LIMITED-B0792146A

PATIENT
  Age: 34 Year
  Sex: Male

DRUGS (4)
  1. ABACAVIR SULFATE/LAMIVUDINE [Suspect]
     Indication: HIV INFECTION
     Route: 065
  2. MARAVIROC [Suspect]
     Indication: HIV INFECTION
     Route: 065
  3. KALETRA [Suspect]
     Indication: HIV INFECTION
     Route: 065
  4. VENTOLIN [Concomitant]
     Indication: PRODUCT USED FOR UNKNOWN INDICATION
     Route: 065

REACTIONS (1)
  - WEIGHT INCREASED [None]
